FAERS Safety Report 4435022-8 (Version None)
Quarter: 2004Q3

REPORT INFORMATION
  Report Type: 
  Country: None (occurrence: None)
  Receive Date: 20040826
  Receipt Date: 20040826
  Transmission Date: 20050211
  Serious: Yes (Life-Threatening)
  Sender: FDA-Public Use
  Company Number: None

PATIENT
  Sex: Male
  Weight: 238.1384 kg

DRUGS (2)
  1. ZYVOX [Suspect]
     Indication: PNEUMONIA
     Dosage: 600 MG IV Q12 H
     Route: 042
     Dates: start: 20040418, end: 20040502
  2. ZYVOX [Suspect]
     Indication: SEPSIS
     Dosage: 600 MG IV Q12 H
     Route: 042
     Dates: start: 20040418, end: 20040502

REACTIONS (2)
  - ANAEMIA [None]
  - BONE MARROW DEPRESSION [None]
